FAERS Safety Report 15154164 (Version 2)
Quarter: 2018Q4

REPORT INFORMATION
  Report Type: Spontaneous
  Country: DE (occurrence: DE)
  Receive Date: 20180717
  Receipt Date: 20181025
  Transmission Date: 20190204
  Serious: Yes (Hospitalization, Other)
  Sender: FDA-Public Use
  Company Number: DE-SA-2018SA183980

PATIENT
  Age: 43 Year
  Sex: Female

DRUGS (11)
  1. LEMTRADA [Suspect]
     Active Substance: ALEMTUZUMAB
     Indication: MULTIPLE SCLEROSIS
     Dosage: 12 MG
     Route: 041
     Dates: start: 20150323, end: 20150327
  2. METHYLPREDNISOLONE. [Concomitant]
     Active Substance: METHYLPREDNISOLONE
     Dosage: 1 G, QD
     Route: 042
     Dates: start: 20180918, end: 20180919
  3. LEMTRADA [Suspect]
     Active Substance: ALEMTUZUMAB
     Dosage: 12 MG,QD
     Route: 041
     Dates: start: 20170613, end: 20170615
  4. TINZAPARIN [Concomitant]
     Active Substance: TINZAPARIN
     Dosage: UNK
  5. TARENAC [Concomitant]
     Dosage: 10/5 MG
  6. ZOLPIDEM [Concomitant]
     Active Substance: ZOLPIDEM\ZOLPIDEM TARTRATE
     Dosage: 10 MG, AS NEEDED AT NIGHT
  7. IRENAT [Concomitant]
     Active Substance: SODIUM PERCHLORATE
     Dosage: 20 GTT DROPS, TID
     Dates: end: 20180827
  8. DABIGATRAN [Concomitant]
     Active Substance: DABIGATRAN
     Dosage: 150 MG, BID
  9. LEMTRADA [Suspect]
     Active Substance: ALEMTUZUMAB
     Dosage: 12 MG,QD
     Route: 041
     Dates: start: 20160321, end: 20160323
  10. MARCUMAR [Concomitant]
     Active Substance: PHENPROCOUMON
     Dosage: PAUSE, 18.08. + 19.09 = 1/2 TBL.
     Dates: start: 20180817
  11. METHYLPREDNISOLONE. [Concomitant]
     Active Substance: METHYLPREDNISOLONE
     Dosage: 2 G, QD
     Route: 042
     Dates: start: 20180920, end: 20180924

REACTIONS (73)
  - Autoimmune thyroiditis [Unknown]
  - Pneumonia [Unknown]
  - Disturbance in attention [Unknown]
  - Haematocrit decreased [Not Recovered/Not Resolved]
  - Activated partial thromboplastin time prolonged [Not Recovered/Not Resolved]
  - Thyroxine free increased [Not Recovered/Not Resolved]
  - Oxygen saturation increased [Not Recovered/Not Resolved]
  - Red cell distribution width increased [Unknown]
  - Cough [Unknown]
  - White blood cell count decreased [Unknown]
  - Sialoadenitis [Unknown]
  - Epilepsy [Recovered/Resolved]
  - Pulmonary embolism [Recovered/Resolved]
  - Fibrin D dimer increased [Unknown]
  - Weight increased [Unknown]
  - Depressed mood [Unknown]
  - Platelet count increased [Recovered/Resolved]
  - PO2 increased [Not Recovered/Not Resolved]
  - Blood creatinine increased [Unknown]
  - Blood creatine phosphokinase increased [Unknown]
  - Chest pain [Unknown]
  - Hypercoagulation [Unknown]
  - Thyroxine free increased [Unknown]
  - C-reactive protein increased [Not Recovered/Not Resolved]
  - PCO2 decreased [Not Recovered/Not Resolved]
  - Protein total increased [Unknown]
  - Globulins decreased [Unknown]
  - Urinary incontinence [Unknown]
  - Renal failure [Unknown]
  - Glomerular filtration rate decreased [Recovering/Resolving]
  - Deep vein thrombosis [Unknown]
  - Dyspnoea exertional [Unknown]
  - Pleural effusion [Unknown]
  - Atelectasis [Unknown]
  - Mean cell haemoglobin decreased [Not Recovered/Not Resolved]
  - Gamma-glutamyltransferase increased [Not Recovered/Not Resolved]
  - Blood potassium increased [Unknown]
  - Monocyte count increased [Unknown]
  - Pulmonary embolism [Not Recovered/Not Resolved]
  - Night sweats [Recovering/Resolving]
  - Pigmentation disorder [Unknown]
  - Hyperthyroidism [Unknown]
  - Mean cell volume [Not Recovered/Not Resolved]
  - Blood urea decreased [Unknown]
  - Urobilinogen urine increased [Unknown]
  - Bronchitis [Unknown]
  - Blood creatinine increased [Recovering/Resolving]
  - Cataract [Unknown]
  - Memory impairment [Unknown]
  - C-reactive protein decreased [Unknown]
  - Blood pH increased [Not Recovered/Not Resolved]
  - Red blood cell count increased [Unknown]
  - Blood fibrinogen decreased [Unknown]
  - Influenza [Unknown]
  - Pain in extremity [Unknown]
  - Vitiligo [Unknown]
  - Blood thyroid stimulating hormone decreased [Unknown]
  - Disturbance in attention [Unknown]
  - Haemoglobin decreased [Not Recovered/Not Resolved]
  - Alanine aminotransferase increased [Unknown]
  - Nitrite urine [Unknown]
  - Micturition urgency [Unknown]
  - Chest pain [Unknown]
  - Asthma [Unknown]
  - Seasonal allergy [Unknown]
  - International normalised ratio increased [Not Recovered/Not Resolved]
  - Brain natriuretic peptide increased [Unknown]
  - Plasma cells increased [Unknown]
  - Blood bilirubin increased [Unknown]
  - Tri-iodothyronine free decreased [Unknown]
  - Gait disturbance [Unknown]
  - Pyrexia [Unknown]
  - Urinary tract infection [Unknown]

NARRATIVE: CASE EVENT DATE: 201704
